FAERS Safety Report 23518824 (Version 3)
Quarter: 2024Q3

REPORT INFORMATION
  Report Type: Spontaneous
  Country: FR (occurrence: FR)
  Receive Date: 20240213
  Receipt Date: 20240726
  Transmission Date: 20241016
  Serious: Yes (Hospitalization)
  Sender: PURDUE
  Company Number: FR-AFSSAPS-AN2024000116

PATIENT
  Age: 71 Year
  Sex: Male
  Weight: 118 kg

DRUGS (12)
  1. OXYCODONE HYDROCHLORIDE [Suspect]
     Active Substance: OXYCODONE HYDROCHLORIDE
     Indication: Pain
     Dosage: VARIABLE
     Route: 048
     Dates: end: 20231226
  2. ERLEADA [Suspect]
     Active Substance: APALUTAMIDE
     Indication: Prostate cancer
     Dosage: 240 MILLIGRAM, DAILY (60 MG)
     Route: 048
     Dates: start: 20231109, end: 20231224
  3. MESTINON [Suspect]
     Active Substance: PYRIDOSTIGMINE BROMIDE
     Indication: Product used for unknown indication
     Dosage: 2 DOSAGE FORM, DAILY (60 MG)
     Route: 048
     Dates: end: 20231226
  4. MOVICOL [Suspect]
     Active Substance: POLYETHYLENE GLYCOL 3350\POTASSIUM CHLORIDE\SODIUM BICARBONATE\SODIUM CHLORIDE
     Indication: Constipation
     Dosage: 2 DOSAGE FORM, DAILY
     Route: 048
     Dates: end: 20231226
  5. METOPIMAZINE [Suspect]
     Active Substance: METOPIMAZINE
     Indication: Vomiting
     Dosage: 22.5 MILLIGRAM, DAILY
     Route: 048
     Dates: end: 20231226
  6. TRIPTORELIN PAMOATE [Concomitant]
     Active Substance: TRIPTORELIN PAMOATE
     Indication: Product used for unknown indication
     Dosage: 1 DOSAGE FORM, 3 MONTH
     Route: 058
  7. HYDROCHLOROTHIAZIDE\IRBESARTAN [Concomitant]
     Active Substance: HYDROCHLOROTHIAZIDE\IRBESARTAN
     Indication: Product used for unknown indication
     Dosage: 300MG /25MG  IN THE MORNING, DAILY
     Route: 048
  8. ACETAMINOPHEN [Concomitant]
     Active Substance: ACETAMINOPHEN
     Indication: Product used for unknown indication
     Dosage: 3 GRAM, DAILY
     Route: 048
  9. LERCANIDIPINE [Concomitant]
     Active Substance: LERCANIDIPINE
     Indication: Product used for unknown indication
     Dosage: 10 MILLIGRAM, DAILY
     Route: 048
     Dates: end: 20231226
  10. AMILORIDE HYDROCHLORIDE [Concomitant]
     Active Substance: AMILORIDE HYDROCHLORIDE
     Indication: Product used for unknown indication
     Dosage: 1 DOSAGE FORM, DAILY (5 MG)
     Route: 048
     Dates: end: 20231226
  11. ALDOMET [METHYLDOPATE HYDROCHLORIDE] [Concomitant]
     Indication: Product used for unknown indication
     Dosage: 1 DOSAGE FORM, DAILY,(500 MG)
     Route: 048
     Dates: end: 20231226
  12. METFORMIN HYDROCHLORIDE [Concomitant]
     Active Substance: METFORMIN HYDROCHLORIDE
     Indication: Diabetes mellitus
     Dosage: 1 G, DAILY
     Route: 048
     Dates: end: 20231226

REACTIONS (3)
  - Agranulocytosis [Recovered/Resolved]
  - Rash maculo-papular [Recovered/Resolved]
  - Intestinal transit time decreased [Recovered/Resolved]

NARRATIVE: CASE EVENT DATE: 20231201
